FAERS Safety Report 21696798 (Version 1)
Quarter: 2022Q4

REPORT INFORMATION
  Report Type: Report from Study
  Country: US (occurrence: US)
  Receive Date: 20221208
  Receipt Date: 20221208
  Transmission Date: 20230112
  Serious: No
  Sender: FDA-Public Use
  Company Number: US-ABBVIE-22K-163-4441889-00

PATIENT
  Age: 52 Year
  Sex: Female

DRUGS (1)
  1. RINVOQ [Suspect]
     Active Substance: UPADACITINIB
     Indication: Arthritis
     Route: 048
     Dates: start: 20220429

REACTIONS (7)
  - Rash [Not Recovered/Not Resolved]
  - Rash [Unknown]
  - Skin irritation [Not Recovered/Not Resolved]
  - Skin atrophy [Unknown]
  - Acne [Unknown]
  - Pruritus [Unknown]
  - Skin hypertrophy [Unknown]

NARRATIVE: CASE EVENT DATE: 20220401
